FAERS Safety Report 19063845 (Version 2)
Quarter: 2021Q2

REPORT INFORMATION
  Report Type: Spontaneous
  Country: DE (occurrence: DE)
  Receive Date: 20210326
  Receipt Date: 20210403
  Transmission Date: 20210717
  Serious: Yes (Other)
  Sender: FDA-Public Use
  Company Number: DE-TEVA-2021-DE-1893956

PATIENT
  Age: 71 Year
  Sex: Male
  Weight: 76 kg

DRUGS (1)
  1. TAMSULOSIN [Suspect]
     Active Substance: TAMSULOSIN
     Indication: MICTURITION URGENCY
     Dosage: I HAVE BEEN TAKING THIS REMEDY FOR 3 WEEKS
     Dates: start: 20210223

REACTIONS (4)
  - Hypoventilation [Unknown]
  - Nasal congestion [Not Recovered/Not Resolved]
  - Nasal dryness [Unknown]
  - Dry mouth [Not Recovered/Not Resolved]

NARRATIVE: CASE EVENT DATE: 20210224
